FAERS Safety Report 19204716 (Version 3)
Quarter: 2024Q1

REPORT INFORMATION
  Report Type: Report from Study
  Country: CA (occurrence: None)
  Receive Date: 20210503
  Receipt Date: 20240110
  Transmission Date: 20240410
  Serious: Yes (Other)
  Sender: FDA-Public Use
  Company Number: CA-PFIZER INC-2021448838

PATIENT
  Age: 48 Year
  Sex: Female

DRUGS (24)
  1. METHOTREXATE [Suspect]
     Active Substance: METHOTREXATE
     Indication: Product used for unknown indication
  2. COSENTYX [Suspect]
     Active Substance: SECUKINUMAB
     Indication: Psoriatic arthropathy
  3. COSENTYX [Suspect]
     Active Substance: SECUKINUMAB
  4. COSENTYX [Suspect]
     Active Substance: SECUKINUMAB
     Dosage: 1 CYCLICAL
  5. COSENTYX [Suspect]
     Active Substance: SECUKINUMAB
  6. CLARITHROMYCIN [Concomitant]
     Active Substance: CLARITHROMYCIN
  7. AMOXICILLIN [Concomitant]
     Active Substance: AMOXICILLIN
  8. AMOXICILLIN [Concomitant]
     Active Substance: AMOXICILLIN
  9. CEFUROXIME AXETIL [Concomitant]
     Active Substance: CEFUROXIME AXETIL
  10. CEFUROXIME AXETIL [Concomitant]
     Active Substance: CEFUROXIME AXETIL
  11. CEPHALEXIN [Concomitant]
     Active Substance: CEPHALEXIN
  12. CEPHALEXIN [Concomitant]
     Active Substance: CEPHALEXIN
  13. CLARITHROMYCIN;RIFABUTIN [Concomitant]
  14. CLONAZEPAM [Concomitant]
     Active Substance: CLONAZEPAM
  15. CLONAZEPAM [Concomitant]
     Active Substance: CLONAZEPAM
  16. FLUTICASONE\FORMOTEROL [Concomitant]
     Active Substance: FLUTICASONE\FORMOTEROL
  17. FLUTICASONE\FORMOTEROL [Concomitant]
     Active Substance: FLUTICASONE\FORMOTEROL
  18. NAPROXEN [Concomitant]
     Active Substance: NAPROXEN
  19. NAPROXEN [Concomitant]
     Active Substance: NAPROXEN
  20. PLAQUENIL [Concomitant]
     Active Substance: HYDROXYCHLOROQUINE SULFATE
  21. ALBUTEROL [Concomitant]
     Active Substance: ALBUTEROL
  22. ALBUTEROL [Concomitant]
     Active Substance: ALBUTEROL
  23. SULFAMETHOXAZOLE\TRIMETHOPRIM [Concomitant]
     Active Substance: SULFAMETHOXAZOLE\TRIMETHOPRIM
  24. CELEBREX [Concomitant]
     Active Substance: CELECOXIB

REACTIONS (7)
  - Treatment failure [Unknown]
  - Off label use [Unknown]
  - Therapeutic response decreased [Unknown]
  - Fatigue [Unknown]
  - Gastrointestinal disorder [Unknown]
  - Photosensitivity reaction [Unknown]
  - Psoriatic arthropathy [Unknown]
